FAERS Safety Report 17932379 (Version 1)
Quarter: 2020Q2

REPORT INFORMATION
  Report Type: Spontaneous
  Country: AT (occurrence: AT)
  Receive Date: 20200623
  Receipt Date: 20200623
  Transmission Date: 20200714
  Serious: Yes (Life-Threatening)
  Sender: FDA-Public Use
  Company Number: NVSC2020AT176309

PATIENT
  Sex: Male
  Weight: 100 kg

DRUGS (3)
  1. PLAVIX [Concomitant]
     Active Substance: CLOPIDOGREL BISULFATE
     Indication: ANTIPLATELET THERAPY
     Dosage: UNK
     Route: 065
     Dates: start: 20121026
  2. ARGATROBAN. [Suspect]
     Active Substance: ARGATROBAN
     Indication: HEPARIN RESISTANCE
     Dosage: UNK
     Route: 042
     Dates: start: 20121028
  3. THROMBO ASS [Concomitant]
     Active Substance: ASPIRIN
     Indication: ANTIPLATELET THERAPY
     Dosage: UNK
     Route: 065
     Dates: start: 20121025

REACTIONS (2)
  - Off label use [Unknown]
  - Haemorrhage [Recovered/Resolved]

NARRATIVE: CASE EVENT DATE: 20121028
